FAERS Safety Report 8615058-3 (Version None)
Quarter: 2012Q3

REPORT INFORMATION
  Report Type: 
  Country: None (occurrence: None)
  Receive Date: 20120823
  Receipt Date: 20120817
  Transmission Date: 20120928
  Serious: Yes (Hospitalization)
  Sender: FDA-Public Use
  Company Number: PHEH2012US016462

PATIENT
  Sex: Male
  Weight: 105 kg

DRUGS (1)
  1. ARCAPTA [Suspect]
     Dosage: 75 UG, QD
     Dates: start: 20120809

REACTIONS (3)
  - ATRIAL FIBRILLATION [None]
  - DYSPNOEA [None]
  - INCORRECT DOSE ADMINISTERED [None]
